FAERS Safety Report 11465792 (Version 1)
Quarter: 2015Q3

REPORT INFORMATION
  Report Type: Spontaneous
  Country: US (occurrence: US)
  Receive Date: 20150907
  Receipt Date: 20150907
  Transmission Date: 20151125
  Serious: No
  Sender: FDA-Public Use
  Company Number: US-ASTRAZENECA-2015SE83078

PATIENT
  Sex: Male

DRUGS (1)
  1. TUDORZA PRESSAIR [Suspect]
     Active Substance: ACLIDINIUM BROMIDE
     Dosage: ONE PUFF IN THE MORNING AND ONE PUFF IN THE EVENING
     Route: 055

REACTIONS (3)
  - Intentional product misuse [Unknown]
  - Off label use [Unknown]
  - Hypertension [Unknown]
